FAERS Safety Report 23667343 (Version 1)
Quarter: 2024Q1

REPORT INFORMATION
  Report Type: Spontaneous
  Country: ES (occurrence: ES)
  Receive Date: 20240325
  Receipt Date: 20240325
  Transmission Date: 20240410
  Serious: Yes (Hospitalization, Other)
  Sender: FDA-Public Use
  Company Number: ES-009507513-2403ESP002438

PATIENT
  Age: 69 Year
  Sex: Male
  Weight: 46.7 kg

DRUGS (4)
  1. CARBOPLATIN [Suspect]
     Active Substance: CARBOPLATIN
     Indication: Squamous cell carcinoma of lung
     Dosage: UNK  3 WEEKS (AREA UNDER THE CURVE (AUC) 5, Q3W)EVERY 3 WEEKS
     Route: 042
     Dates: start: 20240126, end: 20240126
  2. PACLITAXEL [Suspect]
     Active Substance: PACLITAXEL
     Indication: Squamous cell carcinoma of lung
     Dosage: 175 MILLIGRAM/SQ. METER, 3 WEEKS
     Route: 042
     Dates: start: 20240126, end: 20240126
  3. TECAGINLIMAB [Suspect]
     Active Substance: TECAGINLIMAB
     Indication: Squamous cell carcinoma of lung
     Dosage: 100 MILLIGRAM, 3 WEEKS
     Route: 042
     Dates: start: 20230126, end: 20240126
  4. PEMBROLIZUMAB [Suspect]
     Active Substance: PEMBROLIZUMAB
     Indication: Squamous cell carcinoma of lung
     Dosage: 200 MILLIGRAM,  3 WEEKS
     Route: 042
     Dates: start: 20240126, end: 20240126

REACTIONS (1)
  - Adrenal insufficiency [Recovered/Resolved]

NARRATIVE: CASE EVENT DATE: 20240215
